FAERS Safety Report 5622925-1 (Version None)
Quarter: 2008Q1

REPORT INFORMATION
  Report Type: 
  Country: None (occurrence: None)
  Receive Date: 20080212
  Receipt Date: 20080201
  Transmission Date: 20080703
  Serious: Yes (Other)
  Sender: FDA-Public Use
  Company Number: PHBS2007JP20227

PATIENT
  Age: 53 Year
  Sex: Male
  Weight: 60 kg

DRUGS (9)
  1. TEGRETOL [Suspect]
     Indication: CONVULSION
     Dosage: 400 MG, TID
     Route: 048
     Dates: start: 20070802, end: 20071031
  2. TEGRETOL [Suspect]
     Dosage: 1000 MG DAILY
     Route: 048
     Dates: start: 20071101, end: 20071104
  3. TEGRETOL [Suspect]
     Dosage: 800 MG DAILY
     Route: 048
     Dates: start: 20071105, end: 20071108
  4. TEGRETOL [Suspect]
     Dosage: 600 MG DAILY
     Route: 048
     Dates: start: 20071109, end: 20071125
  5. TEGRETOL [Suspect]
     Dosage: 200 MG DAILY
     Route: 048
     Dates: start: 20071126, end: 20071202
  6. TEGRETOL [Suspect]
     Dosage: 100 MG DAILY
     Dates: start: 20071203, end: 20071206
  7. CLONAZEPAM [Concomitant]
     Indication: EPILEPSY
     Dosage: 2 MG, TID
     Route: 048
     Dates: start: 20070914
  8. DEPAKENE [Concomitant]
     Indication: EPILEPSY
     Dosage: 700 MG, TID
     Route: 048
     Dates: start: 20070802, end: 20070905
  9. ALEVIATIN [Concomitant]
     Indication: EPILEPSY
     Dosage: 800 MG/DAY
     Route: 048
     Dates: start: 20070905, end: 20071024

REACTIONS (4)
  - DRUG INEFFECTIVE [None]
  - HYPOGLYCAEMIA [None]
  - MUSCLE ATROPHY [None]
  - OEDEMA PERIPHERAL [None]
